FAERS Safety Report 4981554-3 (Version None)
Quarter: 2006Q2

REPORT INFORMATION
  Report Type: 
  Country: None (occurrence: None)
  Receive Date: 20060424
  Receipt Date: 20050412
  Transmission Date: 20061013
  Serious: Yes (Hospitalization, Disabling)
  Sender: FDA-Public Use
  Company Number: US-MERCK-0504USA02021

PATIENT
  Age: 45 Year
  Sex: Female
  Weight: 75 kg

DRUGS (3)
  1. VIOXX [Suspect]
     Indication: ARTHRITIS
     Route: 048
     Dates: start: 19990101, end: 20040201
  2. ROBAXIN [Concomitant]
     Route: 065
  3. HYDROCODONE HYDROCHLORIDE [Concomitant]
     Route: 065

REACTIONS (7)
  - ANXIETY [None]
  - CARDIAC FAILURE CONGESTIVE [None]
  - CHEST PAIN [None]
  - DEPRESSION [None]
  - HYPERTENSION [None]
  - OEDEMA [None]
  - TACHYCARDIA [None]
